FAERS Safety Report 19138738 (Version 2)
Quarter: 2021Q2

REPORT INFORMATION
  Report Type: Spontaneous
  Country: ES (occurrence: ES)
  Receive Date: 20210415
  Receipt Date: 20210529
  Transmission Date: 20210717
  Serious: Yes (Other)
  Sender: FDA-Public Use
  Company Number: ES-AUROBINDO-AUR-APL-2021-015538

PATIENT
  Age: 79 Year
  Sex: Female
  Weight: 52.6 kg

DRUGS (15)
  1. TRAMADOL. [Suspect]
     Active Substance: TRAMADOL
     Indication: LIMB DISCOMFORT
     Dosage: UNK UNK, TWO TIMES A DAY  (EARLY MORNING AND EVENING)
     Route: 065
     Dates: start: 202103
  2. VICTOZA [Concomitant]
     Active Substance: LIRAGLUTIDE
     Indication: PRODUCT USED FOR UNKNOWN INDICATION
     Dosage: UNK
     Route: 065
  3. INSULIN GLARGINE [Suspect]
     Active Substance: INSULIN GLARGINE
     Indication: TYPE 2 DIABETES MELLITUS
     Dosage: 30 INTERNATIONAL UNIT, ONCE A DAY
     Route: 058
     Dates: start: 20210319
  4. TRAMADOL. [Suspect]
     Active Substance: TRAMADOL
     Indication: EXTREMITY CONTRACTURE
  5. DIAZEPAM. [Concomitant]
     Active Substance: DIAZEPAM
     Indication: PAIN IN EXTREMITY
     Dosage: 1 DOSAGE FORM, ONCE A DAY (AFTER DINNER)
     Route: 065
  6. ENANTYUM [Concomitant]
     Active Substance: DEXKETOPROFEN TROMETAMOL
     Indication: LIMB DISCOMFORT
     Dosage: UNK
     Route: 065
     Dates: start: 20210319
  7. FORXIGA [Concomitant]
     Active Substance: DAPAGLIFLOZIN
     Indication: TYPE 2 DIABETES MELLITUS
     Dosage: 1 DOSAGE FORM, ONCE A DAY
     Route: 065
  8. OZEMPIC [Concomitant]
     Active Substance: SEMAGLUTIDE
     Indication: TYPE 2 DIABETES MELLITUS
     Dosage: UNK, 1 WEEK
     Route: 065
  9. PARACETAMOL [Suspect]
     Active Substance: ACETAMINOPHEN
     Indication: EXTREMITY CONTRACTURE
     Dosage: UNK
     Route: 065
     Dates: start: 202103
  10. PARACETAMOL [Suspect]
     Active Substance: ACETAMINOPHEN
     Indication: PAIN IN EXTREMITY
  11. TRAMADOL. [Suspect]
     Active Substance: TRAMADOL
     Indication: PAIN IN EXTREMITY
  12. PARACETAMOL [Suspect]
     Active Substance: ACETAMINOPHEN
     Indication: LIMB DISCOMFORT
  13. NOVOMIX [Concomitant]
     Active Substance: INSULIN ASPART
     Indication: PRODUCT USED FOR UNKNOWN INDICATION
     Dosage: UNK
     Route: 065
  14. DIAZEPAM. [Concomitant]
     Active Substance: DIAZEPAM
     Indication: EXTREMITY CONTRACTURE
  15. DIAZEPAM. [Concomitant]
     Active Substance: DIAZEPAM
     Indication: LIMB DISCOMFORT

REACTIONS (9)
  - Pain in extremity [Recovering/Resolving]
  - Listless [Unknown]
  - Blood glucose increased [Not Recovered/Not Resolved]
  - Gait disturbance [Unknown]
  - Extremity contracture [Recovering/Resolving]
  - Poor quality sleep [Unknown]
  - Sciatica [Unknown]
  - Limb discomfort [Recovering/Resolving]
  - Hyperglycaemia [Unknown]

NARRATIVE: CASE EVENT DATE: 202103
